FAERS Safety Report 14210727 (Version 1)
Quarter: 2017Q4

REPORT INFORMATION
  Report Type: Spontaneous
  Country: US (occurrence: US)
  Receive Date: 20171121
  Receipt Date: 20171121
  Transmission Date: 20180321
  Serious: No
  Sender: FDA-Public Use
  Company Number: US-BAUSCH-BL-2016-026518

PATIENT
  Age: 69 Year
  Sex: Female
  Weight: 73.55 kg

DRUGS (5)
  1. E2 AND E3 1MG/1ML COMPOUNDED [Concomitant]
     Indication: HORMONE REPLACEMENT THERAPY
     Dosage: 1MG/1ML COMPOUNDED
  2. RESTASIS [Concomitant]
     Active Substance: CYCLOSPORINE
     Indication: MEIBOMIAN GLAND DYSFUNCTION
     Route: 047
  3. LOTEMAX [Suspect]
     Active Substance: LOTEPREDNOL ETABONATE
     Indication: OCULAR ROSACEA
     Route: 047
     Dates: start: 2016
  4. TESTOSTERONE. [Concomitant]
     Active Substance: TESTOSTERONE
     Indication: HORMONE REPLACEMENT THERAPY
     Dosage: 1MG/1ML COMPOUNDED
  5. PROGESTERONE. [Concomitant]
     Active Substance: PROGESTERONE
     Indication: HORMONE REPLACEMENT THERAPY
     Route: 048

REACTIONS (3)
  - Off label use [Not Recovered/Not Resolved]
  - Abnormal sensation in eye [Not Recovered/Not Resolved]
  - Tinnitus [Not Recovered/Not Resolved]

NARRATIVE: CASE EVENT DATE: 2016
